FAERS Safety Report 15686069 (Version 1)
Quarter: 2018Q4

REPORT INFORMATION
  Report Type: Spontaneous
  Country: US (occurrence: US)
  Receive Date: 20181204
  Receipt Date: 20181204
  Transmission Date: 20190205
  Serious: No
  Sender: FDA-Public Use
  Company Number: US-SA-2018SA328513

PATIENT
  Age: 50 Year
  Sex: Female

DRUGS (1)
  1. FLEXALL PAIN RELIEVING [Suspect]
     Active Substance: MENTHOL

REACTIONS (1)
  - Hypersensitivity [Unknown]
